FAERS Safety Report 4816244-0 (Version None)
Quarter: 2005Q4

REPORT INFORMATION
  Report Type: 
  Country: None (occurrence: None)
  Receive Date: 20051026
  Receipt Date: 20051021
  Transmission Date: 20060501
  Serious: Yes (Life-Threatening, Hospitalization)
  Sender: FDA-Public Use
  Company Number: GXKR2005GB00895

PATIENT
  Age: 67 Year
  Sex: Female

DRUGS (4)
  1. BISOPROLOL (NGX)(BISOPROLOL) [Suspect]
     Indication: ANGIOPATHY
  2. ISOSORBIDE MONONITRATE [Suspect]
     Indication: ANGIOPATHY
  3. ENALAPRIL (NGX) (ENALAPRIL MALEATE) [Suspect]
     Indication: ANGIOPATHY
  4. BUMETANIDE [Suspect]
     Indication: ANGIOPATHY

REACTIONS (10)
  - BRADYCARDIA [None]
  - DIALYSIS [None]
  - DIARRHOEA [None]
  - DRUG INTERACTION [None]
  - ELECTROCARDIOGRAM QRS COMPLEX PROLONGED [None]
  - ELECTROCARDIOGRAM T WAVE AMPLITUDE DECREASED [None]
  - HYPERKALAEMIA [None]
  - LOSS OF CONSCIOUSNESS [None]
  - RENAL FAILURE ACUTE [None]
  - SHOCK [None]
